FAERS Safety Report 8800666 (Version 2)
Quarter: 2015Q3

REPORT INFORMATION
  Report Type: Report from Study
  Country: US (occurrence: US)
  Receive Date: 20120921
  Receipt Date: 20150705
  Transmission Date: 20151125
  Serious: Yes (Death)
  Sender: FDA-Public Use
  Company Number: US-ROCHE-1102893

PATIENT
  Sex: Male

DRUGS (24)
  1. ARANESP [Concomitant]
     Active Substance: DARBEPOETIN ALFA
     Route: 065
  2. ALOXI [Concomitant]
     Active Substance: PALONOSETRON HYDROCHLORIDE
     Dosage: 0.25 UNIT NOT REPORTED
     Route: 065
  3. ERBITUX [Concomitant]
     Active Substance: CETUXIMAB
     Dosage: 600 UNIT NOT REPORTED
     Route: 065
  4. CALCIUM SULFATE [Concomitant]
     Active Substance: CALCIUM SULFATE
     Route: 065
  5. AVASTIN [Suspect]
     Active Substance: BEVACIZUMAB
     Route: 065
  6. BENADRYL [Concomitant]
     Active Substance: DIPHENHYDRAMINE HYDROCHLORIDE
     Dosage: 25 UNIT NOT REPORTED
     Route: 065
  7. ARANESP [Concomitant]
     Active Substance: DARBEPOETIN ALFA
     Route: 065
  8. MEDROL [Concomitant]
     Active Substance: METHYLPREDNISOLONE
     Dosage: 40 UNIT NOT REPORTED
     Route: 065
  9. ZOFRAN [Concomitant]
     Active Substance: ONDANSETRON HYDROCHLORIDE
     Dosage: 32 UNIT NOT REPORTED
     Route: 065
  10. CAMPTOSAR [Concomitant]
     Active Substance: IRINOTECAN HYDROCHLORIDE
     Dosage: 100 UNIT NOT REPORTED
     Route: 065
  11. DEXAMETHASONE. [Concomitant]
     Active Substance: DEXAMETHASONE
     Dosage: 10 UNIT NOT REPORTED
     Route: 065
  12. BACTRIM [Concomitant]
     Active Substance: SULFAMETHOXAZOLE\TRIMETHOPRIM
     Route: 065
  13. ERBITUX [Concomitant]
     Active Substance: CETUXIMAB
     Dosage: 1000 UNIT NOT REPORTED
     Route: 065
  14. MAGNESIUM SULFATE. [Concomitant]
     Active Substance: MAGNESIUM SULFATE
     Route: 065
  15. 5-FLUOROURACIL [Concomitant]
     Active Substance: FLUOROURACIL
     Dosage: 750 UNIT NOT REPORTED
     Route: 065
  16. MEDROL [Concomitant]
     Active Substance: METHYLPREDNISOLONE
     Dosage: 20 UNIT NOT REPORTED
     Route: 065
  17. PHENERGAN [Concomitant]
     Active Substance: PROMETHAZINE HYDROCHLORIDE
     Dosage: 12.5 UNIT NOT REPORTED
     Route: 065
  18. AVASTIN [Suspect]
     Active Substance: BEVACIZUMAB
     Indication: COLON CANCER
     Route: 065
     Dates: start: 20040402
  19. CAMPTOSAR [Concomitant]
     Active Substance: IRINOTECAN HYDROCHLORIDE
     Dosage: 130 UNIT NOT REPORTED
     Route: 065
  20. CAMPTOSAR [Concomitant]
     Active Substance: IRINOTECAN HYDROCHLORIDE
     Dosage: 120 UNIT NOT REPORTED
     Route: 065
  21. OXALIPLATIN. [Concomitant]
     Active Substance: OXALIPLATIN
  22. KYTRIL [Concomitant]
     Active Substance: GRANISETRON HYDROCHLORIDE
     Route: 065
  23. CAMPTOSAR [Concomitant]
     Active Substance: IRINOTECAN HYDROCHLORIDE
     Dosage: 110 UNIT NOT REPORTED
     Route: 065
  24. IMFERON [Concomitant]
     Active Substance: IRON DEXTRAN
     Dosage: 10 CC
     Route: 042

REACTIONS (11)
  - Hernia [Unknown]
  - Haematuria [Unknown]
  - Rectal discharge [Unknown]
  - Pyrexia [Unknown]
  - Dysuria [Unknown]
  - Pelvic discomfort [Unknown]
  - Death [Fatal]
  - Bacteriuria [Unknown]
  - Stoma site reaction [Unknown]
  - Blood bicarbonate decreased [Unknown]
  - Pyuria [Unknown]
